FAERS Safety Report 9613816 (Version 1)
Quarter: 2013Q4

REPORT INFORMATION
  Report Type: Spontaneous
  Country: US (occurrence: US)
  Receive Date: 20131010
  Receipt Date: 20131010
  Transmission Date: 20140711
  Serious: No
  Sender: FDA-Public Use
  Company Number: US-ALLERGAN-1218388US

PATIENT
  Age: 49 Year
  Sex: Female

DRUGS (1)
  1. VANIQA [Suspect]
     Indication: HAIR GROWTH ABNORMAL
     Dosage: APPLIED ON THE CHIN, ALONG THE JAWLINE AND ABOVE THE UPPER LIP
     Route: 061
     Dates: start: 20120913, end: 20120924

REACTIONS (1)
  - Acne [Not Recovered/Not Resolved]
